FAERS Safety Report 9954142 (Version 1)
Quarter: 2014Q1

REPORT INFORMATION
  Report Type: Spontaneous
  Country: KR (occurrence: KR)
  Receive Date: 20140304
  Receipt Date: 20140304
  Transmission Date: 20141002
  Serious: Yes (Hospitalization)
  Sender: FDA-Public Use
  Company Number: PHHY2014KR024266

PATIENT
  Age: 46 Year
  Sex: Female

DRUGS (10)
  1. PREDNISOLONE [Suspect]
     Indication: MYASTHENIA GRAVIS
     Dosage: 15 MG, UNK
  2. PREDNISOLONE [Suspect]
     Dosage: 25 MG, UNK
     Dates: start: 201101
  3. PREDNISOLONE [Suspect]
     Dosage: 10 MG, UNK
  4. ARIPIPRAZOLE [Suspect]
     Indication: PSYCHIATRIC SYMPTOM
     Dosage: 15 MG, UNK
  5. ARIPIPRAZOLE [Suspect]
     Indication: SCHIZOPHRENIA
  6. QUETIAPINE [Suspect]
     Indication: PSYCHIATRIC SYMPTOM
     Dosage: 1200 MG, UNK
     Route: 065
  7. QUETIAPINE [Suspect]
     Indication: SCHIZOPHRENIA
  8. PALIPERIDONE [Suspect]
     Indication: PSYCHIATRIC SYMPTOM
  9. PALIPERIDONE [Suspect]
     Indication: SCHIZOPHRENIA
  10. PROCYCLIDINE [Suspect]

REACTIONS (14)
  - Myasthenia gravis [Recovering/Resolving]
  - Atelectasis [Recovering/Resolving]
  - Eyelid ptosis [Recovering/Resolving]
  - Respiratory muscle weakness [Recovering/Resolving]
  - Dysphonia [Recovering/Resolving]
  - Affect lability [Recovering/Resolving]
  - Respiratory failure [Recovering/Resolving]
  - Respiratory distress [Recovering/Resolving]
  - Schizophrenia [Recovering/Resolving]
  - Somatic delusion [Recovering/Resolving]
  - Insomnia [Recovering/Resolving]
  - Dyspnoea [Recovering/Resolving]
  - Initial insomnia [Recovering/Resolving]
  - Respiratory tract infection [Recovering/Resolving]
